FAERS Safety Report 9391647 (Version 2)
Quarter: 2015Q1

REPORT INFORMATION
  Report Type: Spontaneous
  Country: US (occurrence: None)
  Receive Date: 20130705
  Receipt Date: 20150211
  Transmission Date: 20150721
  Serious: Yes (Disabling, Other)
  Sender: FDA-Public Use
  Company Number: 1307-847

PATIENT
  Age: 82 Year
  Sex: Male

DRUGS (3)
  1. EYLEA [Suspect]
     Active Substance: AFLIBERCEPT
     Indication: AGE-RELATED MACULAR DEGENERATION
     Dosage: 2 MG, MONTHLY, BILATERALLY
     Route: 031
     Dates: start: 20130419
  2. BETADINE /00080001/ (POVIDONE-IODINE) [Concomitant]
  3. LIDOCAINE. [Concomitant]
     Active Substance: LIDOCAINE

REACTIONS (2)
  - Blindness transient [None]
  - Non-infectious endophthalmitis [None]

NARRATIVE: CASE EVENT DATE: 20130620
